FAERS Safety Report 16020964 (Version 1)
Quarter: 2019Q1

REPORT INFORMATION
  Report Type: Spontaneous
  Country: US (occurrence: US)
  Receive Date: 20190301
  Receipt Date: 20190301
  Transmission Date: 20190418
  Serious: No
  Sender: FDA-Public Use
  Company Number: US-PFIZER INC-2019073192

PATIENT
  Age: 80 Year
  Sex: Female
  Weight: 81.63 kg

DRUGS (1)
  1. PREMARIN [Suspect]
     Active Substance: ESTROGENS, CONJUGATED
     Indication: CYSTITIS
     Dosage: UNK (2-3 TIMES A WEEK)
     Route: 067

REACTIONS (1)
  - Drug effective for unapproved indication [Unknown]
